FAERS Safety Report 19431645 (Version 1)
Quarter: 2021Q2

REPORT INFORMATION
  Report Type: Spontaneous
  Country: CN (occurrence: CN)
  Receive Date: 20210617
  Receipt Date: 20210617
  Transmission Date: 20210717
  Serious: Yes (Hospitalization)
  Sender: FDA-Public Use
  Company Number: CN-GLAXOSMITHKLINE-CN2021APC125270

PATIENT
  Age: 17 Year
  Sex: Male
  Weight: 68 kg

DRUGS (20)
  1. COMPOUND GLYCYRRHIZIN [CYSTEINE;GLYCINE;GLYCYRRHIZIC ACID] [Suspect]
     Active Substance: CYSTEINE\GLYCINE\GLYCYRRHIZIN
     Indication: ERYTHEMA
  2. SODIUM THIOSULFATE [Suspect]
     Active Substance: SODIUM THIOSULFATE
     Indication: SKIN PLAQUE
  3. SODIUM THIOSULFATE [Suspect]
     Active Substance: SODIUM THIOSULFATE
     Indication: SKIN DISCOLOURATION
  4. CALAMINE LOTION [Suspect]
     Active Substance: CALAMINE LOTION
     Indication: PAPULE
  5. CALAMINE LOTION [Suspect]
     Active Substance: CALAMINE LOTION
     Indication: ERYTHEMA
  6. COMPOUND GLYCYRRHIZIN [CYSTEINE;GLYCINE;GLYCYRRHIZIC ACID] [Suspect]
     Active Substance: CYSTEINE\GLYCINE\GLYCYRRHIZIN
     Indication: SKIN PLAQUE
  7. CALAMINE LOTION [Suspect]
     Active Substance: CALAMINE LOTION
     Indication: SKIN EXFOLIATION
  8. LAMICTAL [Suspect]
     Active Substance: LAMOTRIGINE
     Indication: EPILEPSY
     Dosage: 50 MG, BID
     Route: 048
     Dates: start: 20210428, end: 20210527
  9. SODIUM THIOSULFATE [Suspect]
     Active Substance: SODIUM THIOSULFATE
     Indication: SKIN EXFOLIATION
  10. SODIUM THIOSULFATE [Suspect]
     Active Substance: SODIUM THIOSULFATE
     Indication: SKIN EXFOLIATION
  11. COMPOUND GLYCYRRHIZIN [CYSTEINE;GLYCINE;GLYCYRRHIZIC ACID] [Suspect]
     Active Substance: CYSTEINE\GLYCINE\GLYCYRRHIZIN
     Indication: MACULE
     Dosage: 80 MG, QD
     Route: 042
     Dates: start: 20210524
  12. COMPOUND GLYCYRRHIZIN [CYSTEINE;GLYCINE;GLYCYRRHIZIC ACID] [Suspect]
     Active Substance: CYSTEINE\GLYCINE\GLYCYRRHIZIN
     Indication: SKIN EXFOLIATION
  13. SODIUM THIOSULFATE [Suspect]
     Active Substance: SODIUM THIOSULFATE
     Indication: MACULE
     Dosage: 0.64 G, QD
     Route: 042
     Dates: start: 20210524
  14. SODIUM THIOSULFATE [Suspect]
     Active Substance: SODIUM THIOSULFATE
     Indication: ERYTHEMA
  15. SODIUM THIOSULFATE [Suspect]
     Active Substance: SODIUM THIOSULFATE
     Indication: PYREXIA
  16. COMPOUND GLYCYRRHIZIN [CYSTEINE;GLYCINE;GLYCYRRHIZIC ACID] [Suspect]
     Active Substance: CYSTEINE\GLYCINE\GLYCYRRHIZIN
     Indication: PYREXIA
  17. COMPOUND GLYCYRRHIZIN [CYSTEINE;GLYCINE;GLYCYRRHIZIC ACID] [Suspect]
     Active Substance: CYSTEINE\GLYCINE\GLYCYRRHIZIN
     Indication: SKIN DISCOLOURATION
  18. CALAMINE LOTION [Suspect]
     Active Substance: CALAMINE LOTION
     Indication: MACULE
     Dosage: UNK UNK, BID
     Route: 061
     Dates: start: 20210524
  19. LAMICTAL [Suspect]
     Active Substance: LAMOTRIGINE
     Dosage: 25 MG, BID
     Route: 048
     Dates: start: 20210526
  20. COMPOUND GLYCYRRHIZIN [CYSTEINE;GLYCINE;GLYCYRRHIZIC ACID] [Suspect]
     Active Substance: CYSTEINE\GLYCINE\GLYCYRRHIZIN
     Indication: RASH MACULO-PAPULAR

REACTIONS (14)
  - Condition aggravated [Recovering/Resolving]
  - Macule [Recovering/Resolving]
  - Vision blurred [Recovering/Resolving]
  - Pruritus [Recovering/Resolving]
  - Intentional underdose [Unknown]
  - Rash [Recovering/Resolving]
  - Skin discolouration [Recovering/Resolving]
  - Skin exfoliation [Recovering/Resolving]
  - Rash maculo-papular [Recovering/Resolving]
  - Erythema [Recovering/Resolving]
  - Pyrexia [Recovering/Resolving]
  - Skin lesion [Recovering/Resolving]
  - Skin plaque [Recovering/Resolving]
  - Chest discomfort [Recovering/Resolving]

NARRATIVE: CASE EVENT DATE: 20210512
